FAERS Safety Report 13408668 (Version 2)
Quarter: 2017Q4

REPORT INFORMATION
  Report Type: Spontaneous
  Country: US (occurrence: US)
  Receive Date: 20170406
  Receipt Date: 20171123
  Transmission Date: 20180320
  Serious: No
  Sender: FDA-Public Use
  Company Number: US-JNJFOC-20170223289

PATIENT
  Age: 7 Year
  Sex: Male

DRUGS (3)
  1. RISPERDAL [Suspect]
     Active Substance: RISPERIDONE
     Indication: DYSTONIA
     Route: 048
     Dates: start: 20030319, end: 20030817
  2. RISPERDAL [Suspect]
     Active Substance: RISPERIDONE
     Indication: BREAST DISORDER
     Route: 048
     Dates: start: 20030319, end: 20030817
  3. RISPERDAL [Suspect]
     Active Substance: RISPERIDONE
     Indication: ABNORMAL WEIGHT GAIN
     Route: 048
     Dates: start: 20030319, end: 20030817

REACTIONS (4)
  - Gynaecomastia [Unknown]
  - Off label use [Unknown]
  - Product use in unapproved indication [Unknown]
  - Emotional disorder [Unknown]

NARRATIVE: CASE EVENT DATE: 20030319
